FAERS Safety Report 8409532-2 (Version None)
Quarter: 2012Q2

REPORT INFORMATION
  Report Type: 
  Country: None (occurrence: None)
  Receive Date: 20120531
  Receipt Date: 20120531
  Transmission Date: 20120825
  Serious: Yes (Other)
  Sender: FDA-Public Use
  Company Number: None

PATIENT
  Sex: Female
  Weight: 49.8957 kg

DRUGS (2)
  1. CLARAVIS [Suspect]
     Indication: ACNE
     Dosage: 40 MG BID PO
     Route: 048
     Dates: start: 20120126
  2. CLARAVIS [Suspect]
     Indication: ACNE
     Dosage: 40 MG BID PO
     Route: 048
     Dates: start: 20120305, end: 20120308

REACTIONS (3)
  - EYE OEDEMA [None]
  - COMPLETED SUICIDE [None]
  - UNEVALUABLE EVENT [None]
